FAERS Safety Report 13607786 (Version 1)
Quarter: 2017Q2

REPORT INFORMATION
  Report Type: Spontaneous
  Country: CH (occurrence: CH)
  Receive Date: 20170602
  Receipt Date: 20170602
  Transmission Date: 20170830
  Serious: Yes (Other)
  Sender: FDA-Public Use
  Company Number: CH-IMPAX LABORATORIES, INC-2017-IPXL-01446

PATIENT
  Age: 11 Day
  Sex: Male

DRUGS (6)
  1. CARVEDILOL. [Interacting]
     Active Substance: CARVEDILOL
     Indication: SINUS TACHYCARDIA
     Dosage: 0.04 MG/KG/DOSE, TWICE A DAY
     Route: 065
  2. SPIRONOLACTONE. [Concomitant]
     Active Substance: SPIRONOLACTONE
     Indication: DIURETIC THERAPY
     Dosage: 1.2 MG/KG, DAILY
     Route: 048
  3. FUROSEMID [Concomitant]
     Active Substance: FUROSEMIDE
     Indication: DIURETIC THERAPY
     Dosage: 1.6-2.5 MG/KG/DAY
     Route: 048
  4. MILRINONE [Concomitant]
     Active Substance: MILRINONE
     Indication: CARDIAC DISORDER
     Dosage: 0.5 MCG/KG/MIN; UNK
     Route: 065
  5. DIGOXIN. [Suspect]
     Active Substance: DIGOXIN
     Indication: POSITIVE CARDIAC INOTROPIC EFFECT
     Dosage: 3 ?G/KG, DAILY
     Route: 065
  6. CARVEDILOL. [Interacting]
     Active Substance: CARVEDILOL
     Indication: BLOOD PRESSURE INCREASED

REACTIONS (7)
  - Drug interaction [Unknown]
  - Toxicity to various agents [Unknown]
  - Atrioventricular block first degree [Unknown]
  - Atrioventricular block second degree [Unknown]
  - Cardioactive drug level increased [Recovered/Resolved]
  - Bundle branch block [Recovered/Resolved]
  - Bacillus bacteraemia [Unknown]
